FAERS Safety Report 10103513 (Version 1)
Quarter: 2014Q2

REPORT INFORMATION
  Report Type: Spontaneous
  Country: US (occurrence: US)
  Receive Date: 20140424
  Receipt Date: 20140424
  Transmission Date: 20141212
  Serious: No
  Sender: FDA-Public Use
  Company Number: US-BRISTOL-MYERS SQUIBB COMPANY-20473260

PATIENT
  Age: 71 Year
  Sex: Male
  Weight: 99.77 kg

DRUGS (7)
  1. ELIQUIS [Suspect]
     Dates: start: 20131223
  2. GLIPIZIDE [Concomitant]
  3. METFORMIN [Concomitant]
  4. DIOVAN [Concomitant]
  5. DIGOXIN [Concomitant]
  6. MUCINEX [Concomitant]
  7. METOPROLOL [Concomitant]

REACTIONS (2)
  - Dental caries [Unknown]
  - Pain [Unknown]
